FAERS Safety Report 7320469-2 (Version None)
Quarter: 2011Q1

REPORT INFORMATION
  Report Type: 
  Country: None (occurrence: None)
  Receive Date: 20110215
  Receipt Date: 20110204
  Transmission Date: 20110831
  Serious: Yes (Hospitalization)
  Sender: FDA-Public Use
  Company Number: ALA_01698_2011

PATIENT
  Age: 24 Year
  Sex: Female

DRUGS (1)
  1. MESALAMINE [Suspect]
     Indication: COLITIS ULCERATIVE
     Dosage: (800 MG BID)
     Dates: start: 20090101

REACTIONS (3)
  - WEGENER'S GRANULOMATOSIS [None]
  - CHEST PAIN [None]
  - PLEURAL EFFUSION [None]
